FAERS Safety Report 19624466 (Version 1)
Quarter: 2021Q3

REPORT INFORMATION
  Report Type: Spontaneous
  Country: US (occurrence: US)
  Receive Date: 20210728
  Receipt Date: 20210728
  Transmission Date: 20211014
  Serious: Yes (Hospitalization)
  Sender: FDA-Public Use
  Company Number: US-MYLANLABS-2021M1046079

PATIENT
  Age: 86 Year
  Sex: Male

DRUGS (7)
  1. METOPROLOL. [Concomitant]
     Active Substance: METOPROLOL
     Indication: HYPERTENSION
     Dosage: 50 MILLIGRAM, QD
     Route: 065
  2. ERYTHROMYCIN. [Suspect]
     Active Substance: ERYTHROMYCIN
     Indication: CONJUNCTIVAL HAEMORRHAGE
     Dosage: UNK
     Route: 061
  3. FRESH FROZEN PLASMA [Concomitant]
     Active Substance: HUMAN PLASMA
     Indication: PROCOAGULANT THERAPY
     Dosage: DOSAGE: 1 UNIT
     Route: 065
  4. WARFARIN [Suspect]
     Active Substance: WARFARIN
     Dosage: 3.75 MILLIGRAM FOR TWO DAYS
     Route: 065
  5. ERYTHROMYCIN. [Suspect]
     Active Substance: ERYTHROMYCIN
     Indication: ANTIBIOTIC THERAPY
  6. WARFARIN [Suspect]
     Active Substance: WARFARIN
     Indication: ATRIAL FIBRILLATION
     Dosage: 2.5 MILLIGRAM, QD
     Route: 065
  7. VITAMIN K [Concomitant]
     Active Substance: PHYTONADIONE
     Indication: PROCOAGULANT THERAPY
     Dosage: UNK
     Route: 065

REACTIONS (2)
  - Dermatitis contact [Unknown]
  - Conjunctival haemorrhage [Recovered/Resolved]
